FAERS Safety Report 4478209-0 (Version None)
Quarter: 2004Q4

REPORT INFORMATION
  Report Type: 
  Country: None (occurrence: None)
  Receive Date: 20041019
  Receipt Date: 20041004
  Transmission Date: 20050328
  Serious: Yes (Hospitalization)
  Sender: FDA-Public Use
  Company Number: GB-JNJFOC-20041000780

PATIENT
  Sex: Male

DRUGS (10)
  1. REMICADE [Suspect]
     Indication: RHEUMATOID ARTHRITIS
     Route: 042
  2. PREDNISOLONE [Concomitant]
  3. METHOTREXATE [Concomitant]
  4. FOLATE [Concomitant]
  5. CALCICHEW [Concomitant]
  6. ASPIRIN [Concomitant]
  7. FERROUS SULFATE TAB [Concomitant]
  8. OMEPRAZOLE [Concomitant]
  9. LISINOPRIL [Concomitant]
  10. PRAVASTATIN [Concomitant]

REACTIONS (7)
  - CLOSTRIDIUM COLITIS [None]
  - ELECTROCARDIOGRAM ST SEGMENT DEPRESSION [None]
  - GRAFT COMPLICATION [None]
  - HAEMATOMA INFECTION [None]
  - PNEUMONIA ASPIRATION [None]
  - SKIN GRAFT [None]
  - TROPONIN INCREASED [None]
